FAERS Safety Report 21480327 (Version 1)
Quarter: 2022Q4

REPORT INFORMATION
  Report Type: Report from Study
  Country: FR (occurrence: FR)
  Receive Date: 20221019
  Receipt Date: 20221019
  Transmission Date: 20230113
  Serious: Yes (Other)
  Sender: FDA-Public Use
  Company Number: FR-MYLANLABS-2022M1115155

PATIENT
  Age: 39 Year
  Sex: Male

DRUGS (18)
  1. METHOTREXATE [Suspect]
     Active Substance: METHOTREXATE
     Indication: Monoclonal gammopathy
     Dosage: UNK
     Route: 065
  2. METHOTREXATE [Suspect]
     Active Substance: METHOTREXATE
     Indication: Henoch-Schonlein purpura
  3. BORTEZOMIB [Suspect]
     Active Substance: BORTEZOMIB
     Indication: Monoclonal gammopathy
     Dosage: UNK
     Route: 065
  4. BORTEZOMIB [Suspect]
     Active Substance: BORTEZOMIB
     Indication: Henoch-Schonlein purpura
  5. LENALIDOMIDE [Suspect]
     Active Substance: LENALIDOMIDE
     Indication: Monoclonal gammopathy
     Dosage: UNK
     Route: 065
  6. LENALIDOMIDE [Suspect]
     Active Substance: LENALIDOMIDE
     Indication: Henoch-Schonlein purpura
  7. DEXAMETHASONE [Suspect]
     Active Substance: DEXAMETHASONE
     Indication: Monoclonal gammopathy
     Dosage: UNK
     Route: 065
  8. DEXAMETHASONE [Suspect]
     Active Substance: DEXAMETHASONE
     Indication: Henoch-Schonlein purpura
  9. COLCHICINE [Suspect]
     Active Substance: COLCHICINE
     Indication: Monoclonal gammopathy
     Dosage: UNK
     Route: 065
  10. COLCHICINE [Suspect]
     Active Substance: COLCHICINE
     Indication: Henoch-Schonlein purpura
  11. DAPSONE\FERROUS OXALATE [Suspect]
     Active Substance: DAPSONE\FERROUS OXALATE
     Indication: Monoclonal gammopathy
     Dosage: UNK
     Route: 065
  12. DAPSONE\FERROUS OXALATE [Suspect]
     Active Substance: DAPSONE\FERROUS OXALATE
     Indication: Henoch-Schonlein purpura
  13. HYDROXYCHLOROQUINE [Suspect]
     Active Substance: HYDROXYCHLOROQUINE
     Indication: Monoclonal gammopathy
     Dosage: UNK
     Route: 065
  14. HYDROXYCHLOROQUINE [Suspect]
     Active Substance: HYDROXYCHLOROQUINE
     Indication: Henoch-Schonlein purpura
  15. CYCLOPHOSPHAMIDE [Suspect]
     Active Substance: CYCLOPHOSPHAMIDE
     Indication: Monoclonal gammopathy
     Dosage: UNK
     Route: 065
  16. CYCLOPHOSPHAMIDE [Suspect]
     Active Substance: CYCLOPHOSPHAMIDE
     Indication: Henoch-Schonlein purpura
  17. RITUXIMAB [Suspect]
     Active Substance: RITUXIMAB
     Indication: Monoclonal gammopathy
     Dosage: UNK
     Route: 065
  18. RITUXIMAB [Suspect]
     Active Substance: RITUXIMAB
     Indication: Henoch-Schonlein purpura

REACTIONS (2)
  - Drug ineffective [Unknown]
  - Off label use [Unknown]
